FAERS Safety Report 9718768 (Version 1)
Quarter: 2013Q4

REPORT INFORMATION
  Report Type: Spontaneous
  Country: US (occurrence: None)
  Receive Date: 20131125
  Receipt Date: 20131125
  Transmission Date: 20140711
  Serious: Yes (Other)
  Sender: FDA-Public Use
  Company Number: 2013AP009810

PATIENT
  Age: 86 Year
  Sex: Female
  Weight: 74 kg

DRUGS (6)
  1. FERRIPROX [Suspect]
     Indication: MYELODYSPLASTIC SYNDROME
     Dosage: 61 MG/KG; QD; PO
     Route: 048
     Dates: start: 20130709, end: 20130819
  2. ASPIRIN [Concomitant]
  3. CITALOPRAM [Concomitant]
  4. GLIPIZIDE [Concomitant]
  5. METFORMIN [Concomitant]
  6. VITAMIN D /00107901/ [Concomitant]

REACTIONS (2)
  - Agranulocytosis [None]
  - Fatigue [None]
